FAERS Safety Report 20634154 (Version 2)
Quarter: 2022Q1

REPORT INFORMATION
  Report Type: Spontaneous
  Country: US (occurrence: US)
  Receive Date: 20220324
  Receipt Date: 20220331
  Transmission Date: 20220424
  Serious: Yes (Other)
  Sender: FDA-Public Use
  Company Number: US-drreddys-LIT/USA/22/0147906

PATIENT
  Age: 13 Year
  Sex: Female

DRUGS (9)
  1. AZACITIDINE [Suspect]
     Active Substance: AZACITIDINE
     Indication: Acute leukaemia
  2. SIROLIMUS [Suspect]
     Active Substance: SIROLIMUS
     Indication: Acute leukaemia
  3. TACROLIMUS [Suspect]
     Active Substance: TACROLIMUS
     Indication: Prophylaxis against graft versus host disease
  4. MYCOPHENOLATE MOFETIL [Suspect]
     Active Substance: MYCOPHENOLATE MOFETIL
     Indication: Prophylaxis against graft versus host disease
  5. FLUDARABINE [Concomitant]
     Active Substance: FLUDARABINE PHOSPHATE
     Indication: Acute leukaemia
  6. FLUDARABINE [Concomitant]
     Active Substance: FLUDARABINE PHOSPHATE
     Indication: Drug therapy
  7. CYTARABINE;DAUNORUBICIN LIPOSOMAL [Concomitant]
     Indication: Acute leukaemia
  8. BUSULFAN [Concomitant]
     Active Substance: BUSULFAN
     Indication: Drug therapy
  9. THYMOCYTE IMMUNE GLOBULIN NOS [Concomitant]
     Active Substance: THYMOCYTE IMMUNE GLOBULIN NOS
     Indication: Drug therapy

REACTIONS (3)
  - Graft versus host disease in skin [Unknown]
  - Arthritis bacterial [Unknown]
  - Drug ineffective [Unknown]
